FAERS Safety Report 10071407 (Version 1)
Quarter: 2014Q2

REPORT INFORMATION
  Report Type: Spontaneous
  Country: JP (occurrence: JP)
  Receive Date: 20140410
  Receipt Date: 20140410
  Transmission Date: 20141212
  Serious: Yes (Other)
  Sender: FDA-Public Use
  Company Number: PHHY2014JP041031

PATIENT
  Age: 27 Day
  Sex: Male

DRUGS (7)
  1. PREDNISOLONE [Suspect]
     Indication: HAEMANGIOMA-THROMBOCYTOPENIA SYNDROME
     Dosage: 2-3 MG/KG, UNK
  2. CARBOPLATIN [Suspect]
     Indication: HAEMANGIOMA-THROMBOCYTOPENIA SYNDROME
     Dosage: 15 MG/KG, MONTHLY
  3. VINCRISTINE [Concomitant]
     Indication: HAEMANGIOMA-THROMBOCYTOPENIA SYNDROME
     Dosage: 0.15 MG/KG, UNK
  4. ACTINOMYCIN D [Suspect]
     Indication: HAEMANGIOMA-THROMBOCYTOPENIA SYNDROME
     Dosage: 0.015 MG/KG, QD
  5. CYCLOPHOSPHAMIDE [Suspect]
     Indication: HAEMANGIOMA-THROMBOCYTOPENIA SYNDROME
     Dosage: 10 MG/KG, UNK
  6. CYCLOPHOSPHAMIDE [Suspect]
     Dosage: 40 MG/KG, UNK
  7. INTERFERON [Concomitant]
     Indication: HAEMANGIOMA-THROMBOCYTOPENIA SYNDROME

REACTIONS (3)
  - Drug resistance [Unknown]
  - Neutropenia [Unknown]
  - Drug ineffective [Unknown]
